FAERS Safety Report 6309670-4 (Version None)
Quarter: 2009Q3

REPORT INFORMATION
  Report Type: 
  Country: None (occurrence: None)
  Receive Date: 20090814
  Receipt Date: 20090811
  Transmission Date: 20100115
  Serious: Yes (Other)
  Sender: FDA-Public Use
  Company Number: US-BRISTOL-MYERS SQUIBB COMPANY-14736920

PATIENT
  Sex: Female

DRUGS (6)
  1. ERBITUX [Suspect]
     Indication: HEAD AND NECK CANCER
  2. HYDROXYUREA [Concomitant]
  3. TYLENOL (CAPLET) [Concomitant]
     Indication: PREMEDICATION
  4. BENADRYL [Concomitant]
     Indication: PREMEDICATION
  5. ZOFRAN [Concomitant]
     Indication: PREMEDICATION
  6. FLUOROURACIL [Concomitant]

REACTIONS (1)
  - BLINDNESS [None]
